FAERS Safety Report 9874876 (Version 1)
Quarter: 2014Q1

REPORT INFORMATION
  Report Type: Spontaneous
  Country: US (occurrence: None)
  Receive Date: 20140204
  Receipt Date: 20140204
  Transmission Date: 20141002
  Serious: Yes (Death)
  Sender: FDA-Public Use
  Company Number: ABR_01469_2014

PATIENT
  Age: 1 Day
  Sex: Male

DRUGS (2)
  1. AMPHETAMINE [Suspect]
     Indication: PRODUCT USED FOR UNKNOWN INDICATION
     Dosage: OTHER
  2. METHAMPHETAMINE (NOT SPECIFIED) [Suspect]
     Indication: PRODUCT USED FOR UNKNOWN INDICATION
     Dosage: OTHER

REACTIONS (2)
  - Poisoning [None]
  - Drug abuse [None]
